FAERS Safety Report 9887512 (Version 1)
Quarter: 2013Q4

REPORT INFORMATION
  Report Type: Spontaneous
  Country: US (occurrence: None)
  Receive Date: 20131223
  Receipt Date: 20131223
  Transmission Date: 20140711
  Serious: Yes (Other)
  Sender: FDA-Public Use
  Company Number: 220647LEO

PATIENT
  Sex: Male

DRUGS (2)
  1. PICATO [Suspect]
     Indication: ACTINIC KERATOSIS
     Route: 061
     Dates: start: 20130211, end: 20130213
  2. FLOMAX (TAMSULOSIN HYDROCHLORIDE) [Concomitant]

REACTIONS (2)
  - Drug ineffective [None]
  - Drug administration error [None]
